FAERS Safety Report 17455658 (Version 2)
Quarter: 2020Q1

REPORT INFORMATION
  Report Type: Spontaneous
  Country: IL (occurrence: IL)
  Receive Date: 20200225
  Receipt Date: 20200318
  Transmission Date: 20200409
  Serious: Yes (Hospitalization, Other)
  Sender: FDA-Public Use
  Company Number: IL-CELLTRION INC.-2020IL019380

PATIENT

DRUGS (9)
  1. IFOSFAMIDE. [Suspect]
     Active Substance: IFOSFAMIDE
     Indication: BURKITT^S LYMPHOMA
     Dosage: R-IVAC
     Dates: start: 20200105, end: 20200107
  2. METHOTREXATE. [Concomitant]
     Active Substance: METHOTREXATE
     Dosage: UNK
  3. TRUXIMA [Suspect]
     Active Substance: RITUXIMAB-ABBS
     Indication: BURKITT^S LYMPHOMA
     Dosage: 500
     Dates: start: 20200105, end: 20200107
  4. TRUXIMA [Suspect]
     Active Substance: RITUXIMAB-ABBS
     Dosage: 100
     Dates: start: 20200105, end: 20200107
  5. ETOPOSIDE. [Suspect]
     Active Substance: ETOPOSIDE
     Indication: BURKITT^S LYMPHOMA
     Dosage: R-IVAC
     Dates: start: 20200105, end: 20200107
  6. LEUCOVORIN [FOLINIC ACID] [Concomitant]
     Active Substance: LEUCOVORIN
  7. LANTON [Concomitant]
  8. CYTARABINE. [Suspect]
     Active Substance: CYTARABINE
     Indication: BURKITT^S LYMPHOMA
     Dosage: R-IVAC
     Dates: start: 20200105, end: 20200107
  9. ALLORIL [Concomitant]
     Active Substance: ALLOPURINOL

REACTIONS (10)
  - Pneumonia [Recovering/Resolving]
  - Pneumonitis [Recovering/Resolving]
  - Corona virus infection [Recovering/Resolving]
  - Diarrhoea [Unknown]
  - Product use in unapproved indication [Unknown]
  - Pyrexia [Recovering/Resolving]
  - Cough [Recovering/Resolving]
  - Hypokalaemia [Unknown]
  - Pancytopenia [Recovering/Resolving]
  - Oral herpes [Unknown]
